FAERS Safety Report 4732041-9 (Version None)
Quarter: 2005Q3

REPORT INFORMATION
  Report Type: 
  Country: None (occurrence: None)
  Receive Date: 20050721
  Receipt Date: 20050413
  Transmission Date: 20060218
  Serious: No
  Sender: FDA-Public Use
  Company Number: 2005SP000171

PATIENT
  Age: 52 Year
  Sex: Female

DRUGS (3)
  1. LUNESTA [Suspect]
     Indication: INSOMNIA
     Dosage: 1 MG;HS;ORAL
     Route: 048
     Dates: start: 20050401
  2. AMBIEN [Concomitant]
  3. ATENOLOL [Concomitant]

REACTIONS (2)
  - PALPITATIONS [None]
  - PARADOXICAL DRUG REACTION [None]
